FAERS Safety Report 6511898-5 (Version None)
Quarter: 2009Q4

REPORT INFORMATION
  Report Type: 
  Country: None (occurrence: None)
  Receive Date: 20091222
  Receipt Date: 20090623
  Transmission Date: 20100525
  Serious: No
  Sender: FDA-Public Use
  Company Number: US-ASTRAZENECA-2009UW17110

PATIENT
  Sex: Female
  Weight: 68 kg

DRUGS (5)
  1. CRESTOR [Suspect]
     Route: 048
     Dates: start: 20090101
  2. METOPROLOL TARTRATE [Concomitant]
  3. CO Q10 [Concomitant]
  4. VITAMIN D [Concomitant]
  5. SUPPLEMENTS [Concomitant]

REACTIONS (1)
  - SWEAT DISCOLOURATION [None]
